FAERS Safety Report 4497518-2 (Version None)
Quarter: 2004Q4

REPORT INFORMATION
  Report Type: 
  Country: None (occurrence: None)
  Receive Date: 20041104
  Receipt Date: 20041027
  Transmission Date: 20050328
  Serious: Yes (Hospitalization)
  Sender: FDA-Public Use
  Company Number: ERP04000346

PATIENT
  Age: 49 Year
  Sex: Female

DRUGS (1)
  1. ACTONEL [Suspect]
     Indication: OSTEOPOROSIS
     Dosage: 35 MG

REACTIONS (3)
  - ABDOMINAL PAIN UPPER [None]
  - HYPOTENSION [None]
  - VERTIGO [None]
